FAERS Safety Report 6772565-6 (Version None)
Quarter: 2010Q2

REPORT INFORMATION
  Report Type: 
  Country: None (occurrence: None)
  Receive Date: 20100616
  Receipt Date: 20090629
  Transmission Date: 20101027
  Serious: No
  Sender: FDA-Public Use
  Company Number: US-ASTRAZENECA-2009UW18164

PATIENT
  Age: 63 Year
  Sex: Female

DRUGS (12)
  1. PULMICORT FLEXHALER [Suspect]
     Indication: ASTHMA
     Route: 055
  2. PREMARIN [Concomitant]
  3. CRESTOR [Concomitant]
     Route: 048
  4. NITROGLYCERIN [Concomitant]
  5. BONIVA [Concomitant]
  6. SINGULAIR [Concomitant]
  7. LOVASA [Concomitant]
  8. NORVASC [Concomitant]
  9. IMDUR [Concomitant]
  10. ASPIRIN [Concomitant]
  11. PLAVIX [Concomitant]
  12. PREVACID [Concomitant]

REACTIONS (5)
  - ABDOMINAL DISTENSION [None]
  - DYSPNOEA [None]
  - EYELID OEDEMA [None]
  - OEDEMA PERIPHERAL [None]
  - WEIGHT INCREASED [None]
